FAERS Safety Report 9371847 (Version 1)
Quarter: 2013Q2

REPORT INFORMATION
  Report Type: Spontaneous
  Country: US (occurrence: None)
  Receive Date: 20130625
  Receipt Date: 20130625
  Transmission Date: 20140414
  Serious: Yes (Hospitalization, Other)
  Sender: FDA-Public Use
  Company Number: 2013AP006108

PATIENT
  Age: 67 Year
  Sex: Male
  Weight: 66.22 kg

DRUGS (7)
  1. CLOPIDOGREL [Suspect]
  2. PLAVIX /01220701/ [Suspect]
     Indication: PERIPHERAL ARTERY ANGIOPLASTY
     Dates: start: 20130416
  3. ASPIRIN [Concomitant]
  4. COUMADIN [Concomitant]
  5. LISINOPRIL [Concomitant]
  6. VITAMIN B-12 [Concomitant]
  7. PRAVASTATIN [Concomitant]

REACTIONS (19)
  - Blood pressure increased [None]
  - Blood pressure decreased [None]
  - Pelvic venous thrombosis [None]
  - Syncope [None]
  - Thrombotic thrombocytopenic purpura [None]
  - Deep vein thrombosis [None]
  - Haematoma [None]
  - Phlebitis [None]
  - Fall [None]
  - Circulatory collapse [None]
  - Haemodilution [None]
  - International normalised ratio decreased [None]
  - Vascular rupture [None]
  - Memory impairment [None]
  - Contusion [None]
  - Bedridden [None]
  - Body temperature increased [None]
  - Bacterial test [None]
  - Epistaxis [None]
